FAERS Safety Report 9711730 (Version 1)
Quarter: 2013Q4

REPORT INFORMATION
  Report Type: Spontaneous
  Country: IT (occurrence: None)
  Receive Date: 20131122
  Receipt Date: 20131122
  Transmission Date: 20140711
  Serious: Yes (Hospitalization)
  Sender: FDA-Public Use
  Company Number: ENTC2013-0434

PATIENT
  Age: 83 Year
  Sex: Female

DRUGS (4)
  1. STALEVO [Suspect]
     Indication: PARKINSON^S DISEASE
     Dosage: 200/50/200 MG
     Dates: start: 20120912, end: 20130911
  2. AZILECT [Concomitant]
  3. NIMOTOP [Concomitant]
  4. CARDIRENE [Concomitant]

REACTIONS (1)
  - Hepatitis cholestatic [None]
